FAERS Safety Report 20063241 (Version 1)
Quarter: 2021Q4

REPORT INFORMATION
  Report Type: Spontaneous
  Country: US (occurrence: US)
  Receive Date: 20211112
  Receipt Date: 20211112
  Transmission Date: 20220303
  Serious: Yes (Death, Hospitalization, Other)
  Sender: FDA-Public Use
  Company Number: US-MYLANLABS-2021M1083645

PATIENT
  Sex: Male

DRUGS (3)
  1. CLOZAPINE [Suspect]
     Active Substance: CLOZAPINE
     Indication: Schizophrenia
     Dosage: (1 PILL TWICE A DAY AND A MONTH LATER IT WAS 2 PILLS TWICE A DAY)
     Route: 048
     Dates: start: 20210527, end: 20210803
  2. CLOZAPINE [Suspect]
     Active Substance: CLOZAPINE
     Indication: White blood cell count decreased
  3. SEROQUEL [Concomitant]
     Active Substance: QUETIAPINE FUMARATE
     Indication: White blood cell count decreased
     Dosage: UNK

REACTIONS (4)
  - Hospitalisation [Fatal]
  - Progressive multifocal leukoencephalopathy [Not Recovered/Not Resolved]
  - Granulocytosis [Not Recovered/Not Resolved]
  - Product use in unapproved indication [Unknown]

NARRATIVE: CASE EVENT DATE: 20210803
